FAERS Safety Report 16114092 (Version 2)
Quarter: 2021Q2

REPORT INFORMATION
  Report Type: Spontaneous
  Country: US (occurrence: US)
  Receive Date: 20190325
  Receipt Date: 20210413
  Transmission Date: 20210716
  Serious: No
  Sender: FDA-Public Use
  Company Number: US-ALLERGAN-1815153US

PATIENT
  Age: 70 Year
  Sex: Female
  Weight: 58.96 kg

DRUGS (2)
  1. LUMIGAN [Suspect]
     Active Substance: BIMATOPROST
     Indication: GLAUCOMA
     Dosage: 2 GTT, QHS
     Route: 047
     Dates: start: 201802, end: 201803
  2. LEVOTHYROXINE. [Suspect]
     Active Substance: LEVOTHYROXINE
     Indication: HYPOTHYROIDISM
     Dosage: 0.75 ?G, QD
     Route: 048

REACTIONS (10)
  - Eyelid irritation [Recovered/Resolved]
  - Scar [Not Recovered/Not Resolved]
  - Abnormal faeces [Recovered/Resolved]
  - Hepatic enzyme increased [Recovered/Resolved]
  - Change of bowel habit [Unknown]
  - Skin discolouration [Recovered/Resolved]
  - Erythema of eyelid [Recovered/Resolved]
  - Eyelid exfoliation [Unknown]
  - Swelling of eyelid [Recovered/Resolved]
  - Eye pain [Recovered/Resolved]
